FAERS Safety Report 9125548 (Version 1)
Quarter: 2013Q1

REPORT INFORMATION
  Report Type: Spontaneous
  Country: US (occurrence: US)
  Receive Date: 20130227
  Receipt Date: 20130227
  Transmission Date: 20140127
  Serious: Yes (Other)
  Sender: FDA-Public Use
  Company Number: US-PFIZER INC-2013070947

PATIENT
  Age: 74 Year
  Sex: Female
  Weight: 54.42 kg

DRUGS (11)
  1. LIPITOR [Suspect]
     Dosage: UNK
     Dates: start: 2003
  2. LIPITOR [Suspect]
     Dosage: UNK
     Dates: start: 20110731
  3. ATORVASTATIN CALCIUM [Suspect]
     Dosage: UNK
     Dates: start: 2012
  4. METOPROLOL [Concomitant]
     Indication: MYOCARDIAL INFARCTION
     Dosage: 1/2 TABLET IN MORNING AND AT AFTERNOON
  5. VITAMIN B12 [Concomitant]
     Dosage: UNK
  6. TRAMADOL [Concomitant]
     Dosage: UNK
  7. ASPIRIN [Concomitant]
     Indication: MYOCARDIAL INFARCTION
     Dosage: UNK
  8. VITAMIN E [Concomitant]
     Dosage: UNK
  9. CO-Q-10 [Concomitant]
     Dosage: UNK
  10. SIMVASTATIN [Concomitant]
     Dosage: 40 MG, 1X/DAY
     Dates: end: 2012
  11. PLAVIX [Concomitant]
     Indication: MYOCARDIAL INFARCTION
     Dosage: UNK
     Dates: end: 2012

REACTIONS (4)
  - Myocardial infarction [Unknown]
  - Hypertension [Recovered/Resolved]
  - Burning sensation [Recovered/Resolved]
  - Paraesthesia [Recovered/Resolved]
